FAERS Safety Report 6244502-4 (Version None)
Quarter: 2009Q2

REPORT INFORMATION
  Report Type: 
  Country: None (occurrence: None)
  Receive Date: 20090625
  Receipt Date: 20090616
  Transmission Date: 20091009
  Serious: Yes (Hospitalization, Other)
  Sender: FDA-Public Use
  Company Number: KR-JNJFOC-20090605152

PATIENT
  Age: 19 Year
  Sex: Male

DRUGS (5)
  1. RISPERIDONE [Suspect]
     Indication: AGITATION
     Route: 065
  2. SERTRALINE [Suspect]
     Indication: DEPRESSION
     Route: 065
  3. VALPROATE SODIUM [Interacting]
     Indication: DRUG USE FOR UNKNOWN INDICATION
     Route: 065
  4. QUETIAPINE FUMARATE [Interacting]
     Indication: AGGRESSION
     Route: 065
  5. CLONAZEPAM [Interacting]
     Indication: AGGRESSION
     Route: 065

REACTIONS (3)
  - DRUG INTERACTION [None]
  - NEUROLEPTIC MALIGNANT SYNDROME [None]
  - SEROTONIN SYNDROME [None]
